FAERS Safety Report 8240563-1 (Version None)
Quarter: 2012Q1

REPORT INFORMATION
  Report Type: 
  Country: None (occurrence: None)
  Receive Date: 20120328
  Receipt Date: 20120313
  Transmission Date: 20120608
  Serious: Yes (Death, Other)
  Sender: FDA-Public Use
  Company Number: JP-ROCHE-1047721

PATIENT
  Age: 65 Year
  Sex: Male

DRUGS (5)
  1. OXALIPLATIN [Concomitant]
     Indication: RECTAL CANCER METASTATIC
     Dosage: DOSAGE IS UNCERTAIN.
     Route: 041
  2. AVASTIN [Suspect]
     Indication: RECTAL CANCER METASTATIC
     Dosage: DOSAGE IS UNCERTAIN.
     Route: 041
  3. FLUOROURACIL [Concomitant]
     Dosage: DOSAGE IS UNCERTAIN.
     Route: 041
  4. FLUOROURACIL [Concomitant]
     Indication: RECTAL CANCER METASTATIC
     Dosage: DOSAGE IS UNCERTAIN.
     Route: 040
  5. LEVOFOLINATE [Concomitant]
     Indication: RECTAL CANCER METASTATIC
     Dosage: DOSAGE IS UNCERTAIN.
     Route: 041

REACTIONS (2)
  - INTESTINAL FISTULA [None]
  - RECTAL CANCER METASTATIC [None]
